FAERS Safety Report 4963312-9 (Version None)
Quarter: 2006Q2

REPORT INFORMATION
  Report Type: 
  Country: None (occurrence: None)
  Receive Date: 20060404
  Receipt Date: 20060404
  Transmission Date: 20061013
  Serious: No
  Sender: FDA-Public Use
  Company Number: None

PATIENT
  Age: 64 Year
  Sex: Male
  Weight: 124.7392 kg

DRUGS (2)
  1. SINGULAIR [Suspect]
     Indication: RHINITIS ALLERGIC
     Dosage: 5 MG 2 TABS ONCE/DAYPO
     Route: 048
     Dates: start: 20060315, end: 20060316
  2. SINGULAIR [Suspect]
     Indication: RHINITIS ALLERGIC
     Dosage: 10 MG 1 TAB ONCE /DAY PO
     Route: 048
     Dates: start: 20060317, end: 20060319

REACTIONS (5)
  - BURNING SENSATION MUCOSAL [None]
  - DYSPEPSIA [None]
  - PARAESTHESIA ORAL [None]
  - PRURITUS [None]
  - TONGUE DISORDER [None]
